FAERS Safety Report 7481038-7 (Version None)
Quarter: 2011Q2

REPORT INFORMATION
  Report Type: 
  Country: None (occurrence: None)
  Receive Date: 20110512
  Receipt Date: 20110512
  Transmission Date: 20111010
  Serious: Yes (Other)
  Sender: FDA-Public Use
  Company Number: None

PATIENT
  Age: 76 Year
  Sex: Female
  Weight: 106.1417 kg

DRUGS (1)
  1. NUVIGIL [Suspect]
     Indication: NARCOLEPSY
     Dosage: 1 DAILY
     Dates: start: 20110104, end: 20110215

REACTIONS (6)
  - AMBLYOPIA [None]
  - VAGINAL INFECTION [None]
  - PRODUCT SUBSTITUTION ISSUE [None]
  - BALANCE DISORDER [None]
  - PAIN IN EXTREMITY [None]
  - URINARY TRACT INFECTION [None]
